FAERS Safety Report 5377166-2 (Version None)
Quarter: 2007Q3

REPORT INFORMATION
  Report Type: 
  Country: None (occurrence: None)
  Receive Date: 20070703
  Receipt Date: 20070625
  Transmission Date: 20080115
  Serious: No
  Sender: FDA-Public Use
  Company Number: US-ELI_LILLY_AND_COMPANY-US200704001154

PATIENT
  Age: 53 Year
  Sex: Female
  Weight: 92.063 kg

DRUGS (5)
  1. BYETTA [Suspect]
     Indication: TYPE 2 DIABETES MELLITUS
     Dosage: 5 UG, 2/D
     Route: 058
     Dates: start: 20070201
  2. CELEXA [Concomitant]
     Dosage: UNK, UNKNOWN
     Dates: start: 20070201
  3. METFORMIN [Concomitant]
     Dosage: UNK, UNKNOWN
  4. AVANDIA [Concomitant]
     Dosage: UNK, UNKNOWN
  5. DIOVAN [Concomitant]
     Dosage: UNK, UNKNOWN
     Dates: end: 20070316

REACTIONS (5)
  - DECREASED APPETITE [None]
  - HEART RATE INCREASED [None]
  - HYPOTENSION [None]
  - LETHARGY [None]
  - WEIGHT DECREASED [None]
